FAERS Safety Report 6810744-X (Version None)
Quarter: 2010Q2

REPORT INFORMATION
  Report Type: 
  Country: None (occurrence: None)
  Receive Date: 20100630
  Receipt Date: 20100624
  Transmission Date: 20101027
  Serious: Yes (Hospitalization)
  Sender: FDA-Public Use
  Company Number: US-ABBOTT-10P-163-0653702-00

PATIENT
  Sex: Female
  Weight: 102.15 kg

DRUGS (6)
  1. HUMIRA [Suspect]
     Indication: CROHN'S DISEASE
     Dates: start: 20100101, end: 20100620
  2. LOMOTIL [Concomitant]
     Indication: CROHN'S DISEASE
  3. FLAGYL [Concomitant]
     Indication: CROHN'S DISEASE
  4. NEXIUM [Concomitant]
     Indication: DYSPEPSIA
  5. HUMULIN R [Concomitant]
     Indication: DIABETES MELLITUS
  6. LANTUS [Concomitant]
     Indication: DIABETES MELLITUS

REACTIONS (2)
  - HYPERLIPIDAEMIA [None]
  - PANCREATITIS [None]
